FAERS Safety Report 6176784-1 (Version None)
Quarter: 2009Q2

REPORT INFORMATION
  Report Type: 
  Country: None (occurrence: None)
  Receive Date: 20090501
  Receipt Date: 20081216
  Transmission Date: 20091009
  Serious: Yes (Death, Hospitalization)
  Sender: FDA-Public Use
  Company Number: IE-ALEXION-A200800025

PATIENT

DRUGS (7)
  1. SOLIRIS [Suspect]
     Indication: PAROXYSMAL NOCTURNAL HAEMOGLOBINURIA
     Dosage: 900 MG, SINGLE
     Route: 042
     Dates: start: 20070903, end: 20070903
  2. SOLIRIS [Suspect]
     Dosage: 900 MG, SINGLE
     Route: 042
     Dates: start: 20080211, end: 20080211
  3. PREDNISOLONE [Concomitant]
     Dosage: 25 MG, UNK
  4. LEVEMIR [Concomitant]
  5. WARFARIN SODIUM [Concomitant]
  6. CLEXANE [Concomitant]
  7. HUMULIN                            /00646001/ [Concomitant]

REACTIONS (4)
  - INFLUENZA LIKE ILLNESS [None]
  - MENINGOCOCCAL SEPSIS [None]
  - MULTI-ORGAN FAILURE [None]
  - RASH [None]
